FAERS Safety Report 23158080 (Version 1)
Quarter: 2023Q4

REPORT INFORMATION
  Report Type: Spontaneous
  Country: US (occurrence: US)
  Receive Date: 20231108
  Receipt Date: 20231108
  Transmission Date: 20240110
  Serious: Yes (Other)
  Sender: FDA-Public Use
  Company Number: US-drreddys-LIT/USA/23/0182893

PATIENT
  Age: 47 Year

DRUGS (5)
  1. TESTOSTERONE [Suspect]
     Active Substance: TESTOSTERONE
     Indication: Transgender hormonal therapy
  2. GEMCITABINE [Suspect]
     Active Substance: GEMCITABINE
     Indication: Cholangiocarcinoma
  3. LUPRON DEPOT [Suspect]
     Active Substance: LEUPROLIDE ACETATE
     Indication: Transgender hormonal therapy
  4. TESTOSTERONE CYPIONATE [Suspect]
     Active Substance: TESTOSTERONE CYPIONATE
     Indication: Transgender hormonal therapy
  5. XELODA [Suspect]
     Active Substance: CAPECITABINE
     Indication: Cholangiocarcinoma

REACTIONS (3)
  - Neoplasm progression [Unknown]
  - Cholangiocarcinoma [Unknown]
  - Drug ineffective [Unknown]
